FAERS Safety Report 4818607-6 (Version None)
Quarter: 2005Q4

REPORT INFORMATION
  Report Type: 
  Country: None (occurrence: None)
  Receive Date: 20051101
  Receipt Date: 20051024
  Transmission Date: 20060501
  Serious: No
  Sender: FDA-Public Use
  Company Number: 07/05

PATIENT
  Age: 54 Year
  Sex: Female

DRUGS (3)
  1. SODIUM IODIDE I 131 [Suspect]
     Indication: METASTASES TO LUNG
     Dosage: 3 1-131 THERAPIES AT INTERVALS OF 3 MONTHS, CUMULATIVE
     Dates: start: 20030101, end: 20040101
  2. SODIUM IODIDE I 131 [Suspect]
     Indication: METASTASES TO THE MEDIASTINUM
     Dosage: 3 1-131 THERAPIES AT INTERVALS OF 3 MONTHS, CUMULATIVE
     Dates: start: 20030101, end: 20040101
  3. SODIUM IODIDE I 131 [Suspect]
     Indication: PAPILLARY THYROID CANCER
     Dosage: 3 1-131 THERAPIES AT INTERVALS OF 3 MONTHS, CUMULATIVE
     Dates: start: 20030101, end: 20040101

REACTIONS (1)
  - DACRYOSTENOSIS ACQUIRED [None]
